FAERS Safety Report 20850323 (Version 1)
Quarter: 2022Q2

REPORT INFORMATION
  Report Type: Spontaneous
  Country: US (occurrence: US)
  Receive Date: 20220519
  Receipt Date: 20220519
  Transmission Date: 20220720
  Serious: No
  Sender: FDA-Public Use
  Company Number: US-BRISTOL-MYERS SQUIBB COMPANY-2022-026964

PATIENT
  Age: 7 Year
  Sex: Female
  Weight: 24.6 kg

DRUGS (1)
  1. ORENCIA [Suspect]
     Active Substance: ABATACEPT
     Indication: Dermatomyositis
     Dosage: DOSE : UNAVAILABLE;     FREQ : ONCE A WEEK
     Route: 058
     Dates: start: 2021

REACTIONS (2)
  - Drug ineffective [Unknown]
  - Intentional product use issue [Unknown]
